FAERS Safety Report 5707715-3 (Version None)
Quarter: 2008Q2

REPORT INFORMATION
  Report Type: 
  Country: None (occurrence: None)
  Receive Date: 20080417
  Receipt Date: 20080407
  Transmission Date: 20081010
  Serious: Yes (Death)
  Sender: FDA-Public Use
  Company Number: US-SP-2008-01007

PATIENT
  Age: 75 Year
  Sex: Male

DRUGS (1)
  1. BOTULISM AB [Suspect]
     Indication: BOTULISM
     Route: 065
     Dates: start: 20071111

REACTIONS (1)
  - CARDIAC DISORDER [None]
